FAERS Safety Report 13757880 (Version 2)
Quarter: 2017Q4

REPORT INFORMATION
  Report Type: Report from Study
  Country: GB (occurrence: GB)
  Receive Date: 20170717
  Receipt Date: 20171123
  Transmission Date: 20180320
  Serious: Yes (Hospitalization, Other)
  Sender: FDA-Public Use
  Company Number: GB-ROCHE-1963382

PATIENT
  Age: 50 Year
  Sex: Female

DRUGS (6)
  1. CYCLOPHOSPHAMIDE. [Suspect]
     Active Substance: CYCLOPHOSPHAMIDE
     Indication: CHRONIC LYMPHOCYTIC LEUKAEMIA
     Dosage: FOR 5 DAYS; DAYS 1-5?MOST RECENT DOSE BEFORE DEVELOPING NAUSEA/VOMITING/DEHYDRATION ON 22/SEP/2012:
     Route: 048
     Dates: start: 20120918
  2. RITUXIMAB. [Suspect]
     Active Substance: RITUXIMAB
     Indication: CHRONIC LYMPHOCYTIC LEUKAEMIA
     Dosage: DAY 1 OF CYCLE 1?MOST RECENT DOSE BEFORE DEVELOPING NAUSEA/VOMITING/DEHYDRATION ON 18/SEP/2012: 100
     Route: 042
     Dates: start: 20120918
  3. ACYCLOVIR. [Concomitant]
     Active Substance: ACYCLOVIR
     Indication: INFECTION PROPHYLAXIS
     Route: 065
  4. ALLOPURINOL. [Concomitant]
     Active Substance: ALLOPURINOL
     Route: 065
  5. FLUDARABINE [Suspect]
     Active Substance: FLUDARABINE PHOSPHATE
     Indication: CHRONIC LYMPHOCYTIC LEUKAEMIA
     Dosage: FOR 5 DAYS; DAYS 1-5?MOST RECENT DOSE BEFORE DEVELOPING NAUSEA/VOMITING/DEHYDRATION ON 22/SEP/2012:
     Route: 048
     Dates: start: 20120918
  6. MITOXANTRONE [Suspect]
     Active Substance: MITOXANTRONE HYDROCHLORIDE
     Indication: CHRONIC LYMPHOCYTIC LEUKAEMIA
     Dosage: DAY 1?MOST RECENT DOSE BEFORE DEVELOPING NAUSEA/VOMITING/DEHYDRATION AND NEUTROPENIC SEPSIS ON 18/SE
     Route: 042
     Dates: start: 20120918

REACTIONS (5)
  - Vomiting [Recovered/Resolved]
  - Dehydration [Recovered/Resolved]
  - Neutropenia [Not Recovered/Not Resolved]
  - Neutropenic sepsis [Recovered/Resolved]
  - Nausea [Recovered/Resolved]

NARRATIVE: CASE EVENT DATE: 20121022
